FAERS Safety Report 8965057 (Version 1)
Quarter: 2012Q4

REPORT INFORMATION
  Report Type: 
  Country: US (occurrence: US)
  Receive Date: 20121213
  Receipt Date: 20121213
  Transmission Date: 20130627
  Serious: Yes (Other)
  Sender: FDA-Public Use
  Company Number: US-BRISTOL-MYERS SQUIBB COMPANY-16388126

PATIENT
  Age: 61 Year
  Sex: Male
  Weight: 107.93 kg

DRUGS (10)
  1. PRAVASTATIN SODIUM [Suspect]
     Indication: BLOOD CHOLESTEROL INCREASED
     Dates: start: 200708, end: 20120112
  2. FUROSEMIDE [Concomitant]
  3. DILTIAZEM HCL [Concomitant]
  4. ALLOPURINOL [Concomitant]
  5. NOVOLOG [Concomitant]
  6. BYETTA [Concomitant]
  7. ZESTRIL [Concomitant]
  8. ASPIRIN [Concomitant]
  9. GLIPIZIDE [Concomitant]
  10. BENAZEPRIL HCL [Concomitant]

REACTIONS (2)
  - Blood triglycerides increased [Unknown]
  - High density lipoprotein decreased [Unknown]
